FAERS Safety Report 8854018 (Version 2)
Quarter: 2013Q1

REPORT INFORMATION
  Report Type: Spontaneous
  Country: BR (occurrence: BR)
  Receive Date: 20121022
  Receipt Date: 20130219
  Transmission Date: 20140127
  Serious: Yes (Other)
  Sender: FDA-Public Use
  Company Number: PHHY2012BR093234

PATIENT
  Sex: Male
  Weight: 65 kg

DRUGS (2)
  1. DIOVAN HCT [Suspect]
     Indication: HYPERTENSION
     Dosage: 0.5 DF, (VALSARTAN 160 MG AND HYDROCHLOROTHIAZIDE 12.5 MG)
     Route: 048
     Dates: start: 2008
  2. DIOVAN HCT [Suspect]
     Dosage: 1 DF, (VALSARTAN 80 MG AND HYDROCHLOROTHIAZIDE 12.5 MG)
     Route: 048
     Dates: start: 2012

REACTIONS (5)
  - Accident [Recovering/Resolving]
  - Depression [Recovered/Resolved]
  - Stress [Not Recovered/Not Resolved]
  - Blood pressure increased [Not Recovered/Not Resolved]
  - Wrong technique in drug usage process [Recovering/Resolving]
